FAERS Safety Report 16895343 (Version 1)
Quarter: 2019Q4

REPORT INFORMATION
  Report Type: Spontaneous
  Country: GB (occurrence: GB)
  Receive Date: 20191008
  Receipt Date: 20191008
  Transmission Date: 20200122
  Serious: Yes (Other)
  Sender: FDA-Public Use
  Company Number: GB-MYLANLABS-2019M1092754

PATIENT
  Age: 26 Year
  Sex: Female
  Weight: 73.93 kg

DRUGS (2)
  1. FLUOXETINE [Suspect]
     Active Substance: FLUOXETINE HYDROCHLORIDE
     Indication: DEPRESSION
     Dosage: 80 MILLIGRAM, QD
     Route: 048
     Dates: start: 201804, end: 201904
  2. MICROGYNON                         /00022701/ [Concomitant]
     Active Substance: ETHINYL ESTRADIOL\LEVONORGESTREL ACETATE
     Dosage: UNK

REACTIONS (3)
  - Insomnia [Recovered/Resolved]
  - Nightmare [Recovered/Resolved]
  - Night sweats [Recovered/Resolved]

NARRATIVE: CASE EVENT DATE: 201904
